FAERS Safety Report 4386296-3 (Version None)
Quarter: 2004Q2

REPORT INFORMATION
  Report Type: 
  Country: None (occurrence: None)
  Receive Date: 20040623
  Receipt Date: 20040610
  Transmission Date: 20050107
  Serious: Yes (Hospitalization)
  Sender: FDA-Public Use
  Company Number: US-JNJFOC-20040200802

PATIENT
  Age: 64 Year
  Sex: Female
  Weight: 62.5964 kg

DRUGS (33)
  1. REMICADE [Suspect]
     Indication: PSORIATIC ARTHROPATHY
     Dosage: 192 MG, INTRAVENOUS
     Route: 042
     Dates: start: 20020404
  2. REMICADE [Suspect]
     Indication: PSORIATIC ARTHROPATHY
     Dosage: 192 MG, INTRAVENOUS
     Route: 042
     Dates: start: 20020418
  3. REMICADE [Suspect]
     Indication: PSORIATIC ARTHROPATHY
     Dosage: 192 MG, INTRAVENOUS
     Route: 042
     Dates: start: 20020516
  4. REMICADE [Suspect]
     Indication: PSORIATIC ARTHROPATHY
     Dosage: 192 MG, INTRAVENOUS
     Route: 042
     Dates: start: 20020711
  5. REMICADE [Suspect]
     Indication: PSORIATIC ARTHROPATHY
     Dosage: 192 MG, INTRAVENOUS
     Route: 042
     Dates: start: 20020905
  6. REMICADE [Suspect]
     Indication: PSORIATIC ARTHROPATHY
     Dosage: 192 MG, INTRAVENOUS
     Route: 042
     Dates: start: 20021031
  7. REMICADE [Suspect]
     Indication: PSORIATIC ARTHROPATHY
     Dosage: 192 MG, INTRAVENOUS
     Route: 042
     Dates: start: 20021217
  8. REMICADE [Suspect]
     Indication: PSORIATIC ARTHROPATHY
     Dosage: 192 MG, INTRAVENOUS
     Route: 042
     Dates: start: 20030210
  9. REMICADE [Suspect]
     Indication: PSORIATIC ARTHROPATHY
     Dosage: 192 MG, INTRAVENOUS
     Route: 042
     Dates: start: 20030408
  10. REMICADE [Suspect]
     Indication: PSORIATIC ARTHROPATHY
     Dosage: 192 MG, INTRAVENOUS
     Route: 042
     Dates: start: 20030915
  11. REMICADE [Suspect]
     Indication: PSORIATIC ARTHROPATHY
     Dosage: 192 MG, INTRAVENOUS
     Route: 042
     Dates: start: 20031027
  12. REMICADE [Suspect]
     Indication: PSORIATIC ARTHROPATHY
     Dosage: 192 MG, INTRAVENOUS
     Route: 042
     Dates: start: 20031208
  13. REMICADE [Suspect]
  14. REMICADE [Suspect]
  15. REMICADE [Suspect]
  16. REMICADE [Suspect]
  17. REMICADE [Suspect]
  18. REMICADE [Suspect]
  19. ALTACE [Concomitant]
  20. ELAVIL [Concomitant]
  21. DIFLUCAN [Concomitant]
  22. LEVAQUIN [Concomitant]
  23. FLAGYL [Concomitant]
  24. TIAZAC [Concomitant]
  25. FOLIC ACID [Concomitant]
  26. PREVACID [Concomitant]
  27. CALCIUM (CALCIUM) [Concomitant]
  28. MAGNESIUM (MAGNESIUM) [Concomitant]
  29. VITAMIN C (ASCORBIC ACID) [Concomitant]
  30. PARACETAMOL (PARACETAMOL) [Concomitant]
  31. METHOTREXATE [Concomitant]
  32. PREDNISONE TAB [Concomitant]
  33. TYLENOL [Concomitant]

REACTIONS (6)
  - ALOPECIA [None]
  - DIVERTICULITIS [None]
  - GASTROENTERITIS [None]
  - HEADACHE [None]
  - PLATELET COUNT INCREASED [None]
  - RED BLOOD CELL SEDIMENTATION RATE INCREASED [None]
